FAERS Safety Report 13853120 (Version 7)
Quarter: 2017Q4

REPORT INFORMATION
  Report Type: Report from Study
  Country: BR (occurrence: BR)
  Receive Date: 20170809
  Receipt Date: 20171006
  Transmission Date: 20180320
  Serious: Yes (Death, Hospitalization, Other)
  Sender: FDA-Public Use
  Company Number: BR-ALEXION PHARMACEUTICALS INC-A201707198

PATIENT
  Age: 33 Year
  Sex: Female

DRUGS (4)
  1. SOLIRIS [Suspect]
     Active Substance: ECULIZUMAB
     Indication: HAEMOLYTIC URAEMIC SYNDROME
     Dosage: 900 MG, UNK
     Route: 042
     Dates: start: 20151003, end: 20151023
  2. SOLIRIS [Suspect]
     Active Substance: ECULIZUMAB
     Dosage: 1200 MG, UNK
     Route: 042
     Dates: start: 20151029
  3. SOLIRIS [Suspect]
     Active Substance: ECULIZUMAB
     Dosage: 900 UNK, UNK
     Route: 042
  4. SOLIRIS [Suspect]
     Active Substance: ECULIZUMAB
     Dosage: 1200 MG, UNK
     Route: 042

REACTIONS (15)
  - Blood pressure increased [Recovered/Resolved]
  - Vision blurred [Unknown]
  - Pyrexia [Unknown]
  - Platelet count decreased [Fatal]
  - Anaemia [Unknown]
  - Haemolysis [Fatal]
  - Inappropriate schedule of drug administration [Recovered/Resolved]
  - General physical health deterioration [Fatal]
  - Haemoglobin decreased [Fatal]
  - Asthenia [Unknown]
  - Blood lactate dehydrogenase increased [Fatal]
  - Peritonitis [Fatal]
  - Ill-defined disorder [Unknown]
  - Weight decreased [Unknown]
  - Peritoneal dialysis complication [Unknown]

NARRATIVE: CASE EVENT DATE: 20170614
